FAERS Safety Report 5805776-4 (Version None)
Quarter: 2008Q3

REPORT INFORMATION
  Report Type: 
  Country: None (occurrence: None)
  Receive Date: 20080709
  Receipt Date: 20080709
  Transmission Date: 20090109
  Serious: Yes (Life-Threatening)
  Sender: FDA-Public Use
  Company Number: None

PATIENT
  Age: 59 Year
  Sex: Male
  Weight: 86.8 kg

DRUGS (1)
  1. HYDROMORPHONE HCL [Suspect]
     Indication: PAIN
     Dosage: 2 MG OTHER PO
     Route: 048
     Dates: start: 20080111, end: 20080116

REACTIONS (4)
  - HYPERCAPNIA [None]
  - LETHARGY [None]
  - LUNG INFILTRATION [None]
  - RESPIRATORY DEPRESSION [None]
